FAERS Safety Report 6707905-7 (Version None)
Quarter: 2010Q2

REPORT INFORMATION
  Report Type: 
  Country: None (occurrence: None)
  Receive Date: 20100503
  Receipt Date: 20090501
  Transmission Date: 20101027
  Serious: No
  Sender: FDA-Public Use
  Company Number: US-ASTRAZENECA-2009UW10929

PATIENT
  Age: 51 Year
  Sex: Male

DRUGS (5)
  1. NEXIUM [Suspect]
     Indication: GASTROOESOPHAGEAL REFLUX DISEASE
     Route: 048
  2. ZOCOR [Concomitant]
  3. ASPIRIN [Concomitant]
  4. XANAX [Concomitant]
  5. DARVOCET [Concomitant]

REACTIONS (2)
  - BARRETT'S OESOPHAGUS [None]
  - OSTEOPENIA [None]
